FAERS Safety Report 4317567-4 (Version None)
Quarter: 2004Q1

REPORT INFORMATION
  Report Type: 
  Country: None (occurrence: None)
  Receive Date: 20040312
  Receipt Date: 20040303
  Transmission Date: 20041129
  Serious: Yes (Death)
  Sender: FDA-Public Use
  Company Number: GT-JNJFOC-20040301623

PATIENT
  Age: 7 Year
  Sex: Male

DRUGS (2)
  1. RISPERDAL [Suspect]
     Indication: ACUTE PSYCHOSIS
     Dosage: SEE IMAGE
     Dates: start: 20040223, end: 20040224
  2. RISPERDAL [Suspect]
     Indication: ACUTE PSYCHOSIS
     Dosage: SEE IMAGE
     Dates: start: 20040225, end: 20040225

REACTIONS (8)
  - ARRHYTHMIA [None]
  - BRAIN OEDEMA [None]
  - CYANOSIS [None]
  - ENCEPHALITIS [None]
  - HALLUCINATION [None]
  - HYPOTENSION [None]
  - LOSS OF CONSCIOUSNESS [None]
  - MUSCLE RIGIDITY [None]
